FAERS Safety Report 10598321 (Version 2)
Quarter: 2014Q4

REPORT INFORMATION
  Report Type: Spontaneous
  Country: CH (occurrence: CH)
  Receive Date: 20141121
  Receipt Date: 20141121
  Transmission Date: 20150529
  Serious: Yes (Other)
  Sender: FDA-Public Use
  Company Number: CH-PFIZER INC-2014261824

PATIENT
  Age: 61 Year
  Sex: Female
  Weight: 50 kg

DRUGS (2)
  1. EFFEXOR [Suspect]
     Active Substance: VENLAFAXINE HYDROCHLORIDE
     Indication: DEPRESSION
     Dosage: UNK, (VARIOUS DOSES FROM 75-225 MG)
     Route: 048
     Dates: start: 200101
  2. EFFEXOR [Suspect]
     Active Substance: VENLAFAXINE HYDROCHLORIDE
     Dosage: 37.5 MG, UNK
     Route: 048
     Dates: start: 20140105

REACTIONS (9)
  - Hypotension [Recovered/Resolved]
  - Dyspnoea exertional [Recovered/Resolved]
  - Dependence [Unknown]
  - Drug withdrawal syndrome [Recovered/Resolved]
  - Feeling cold [Recovered/Resolved]
  - Fatigue [Recovered/Resolved]
  - Cardiovascular disorder [Unknown]
  - Asthenia [Unknown]
  - Depressive symptom [Recovered/Resolved]

NARRATIVE: CASE EVENT DATE: 2014
